FAERS Safety Report 5505169-3 (Version None)
Quarter: 2007Q4

REPORT INFORMATION
  Report Type: 
  Country: None (occurrence: None)
  Receive Date: 20071102
  Receipt Date: 20071023
  Transmission Date: 20080405
  Serious: Yes (Hospitalization)
  Sender: FDA-Public Use
  Company Number: BE-AMGEN-US250512

PATIENT

DRUGS (2)
  1. ENBREL [Suspect]
     Indication: DRUG USE FOR UNKNOWN INDICATION
     Route: 058
     Dates: start: 20061201, end: 20070901
  2. ENBREL [Suspect]
     Route: 058
     Dates: start: 20071001, end: 20071001

REACTIONS (3)
  - DRUG ERUPTION [None]
  - NODULE [None]
  - PYREXIA [None]
